FAERS Safety Report 16802618 (Version 3)
Quarter: 2019Q4

REPORT INFORMATION
  Report Type: Report from Study
  Country: FR (occurrence: FR)
  Receive Date: 20190912
  Receipt Date: 20191115
  Transmission Date: 20200122
  Serious: Yes (Hospitalization)
  Sender: FDA-Public Use
  Company Number: FR-ROCHE-2399796

PATIENT
  Age: 63 Year
  Sex: Male
  Weight: 85 kg

DRUGS (4)
  1. AERIUS (DESLORATADINE) [Concomitant]
     Active Substance: DESLORATADINE
  2. ATEZOLIZUMAB. [Suspect]
     Active Substance: ATEZOLIZUMAB
     Indication: NEOPLASM
     Dosage: ON 09/MAY/2019 MOST RECENT DOSE WAS RECEIVED
     Route: 041
     Dates: start: 20180919
  3. PARACETAMOL [Concomitant]
     Active Substance: ACETAMINOPHEN
  4. CABOZANTINIB [Suspect]
     Active Substance: CABOZANTINIB
     Indication: NEOPLASM
     Dosage: ON 08/MAY/2019 MOST RECENT DOSE WAS RECEIVED
     Route: 048
     Dates: start: 20180919, end: 20190524

REACTIONS (1)
  - Cytokine release syndrome [Recovered/Resolved]

NARRATIVE: CASE EVENT DATE: 20190513
